FAERS Safety Report 9512938 (Version 1)
Quarter: 2013Q3

REPORT INFORMATION
  Report Type: Spontaneous
  Country: US (occurrence: None)
  Receive Date: 20130906
  Receipt Date: 20130906
  Transmission Date: 20140515
  Serious: Yes (Hospitalization, Other)
  Sender: FDA-Public Use
  Company Number: 2013/175

PATIENT
  Age: 58 Year
  Sex: Female

DRUGS (2)
  1. LEVETIRACETAM [Suspect]
     Indication: CONVULSION PROPHYLAXIS
  2. LORAZEPAM (NO PREF. NAME) [Concomitant]

REACTIONS (2)
  - Mania [None]
  - Paranoia [None]
